FAERS Safety Report 14920927 (Version 3)
Quarter: 2018Q3

REPORT INFORMATION
  Report Type: Report from Study
  Country: US (occurrence: US)
  Receive Date: 20180521
  Receipt Date: 20180905
  Transmission Date: 20181010
  Serious: Yes (Other)
  Sender: FDA-Public Use
  Company Number: US-ACTELION-A-NJ2017-162161

PATIENT
  Age: 74 Year
  Sex: Female

DRUGS (35)
  1. LETAIRIS [Concomitant]
     Active Substance: AMBRISENTAN
  2. ACETAMINOPHEN. [Concomitant]
     Active Substance: ACETAMINOPHEN
  3. CEPHALEXIN. [Concomitant]
     Active Substance: CEPHALEXIN
  4. TRAMADOL. [Concomitant]
     Active Substance: TRAMADOL
  5. ANASTROZOLE. [Concomitant]
     Active Substance: ANASTROZOLE
  6. FLUOXETINE [Concomitant]
     Active Substance: FLUOXETINE HYDROCHLORIDE
  7. MONTELUKAST [Concomitant]
     Active Substance: MONTELUKAST SODIUM
  8. SPIRIVA [Concomitant]
     Active Substance: TIOTROPIUM BROMIDE MONOHYDRATE
  9. METOPROL XL [Concomitant]
  10. HYDROCODONE [Concomitant]
     Active Substance: HYDROCODONE
  11. LEVOTHYROXINE. [Concomitant]
     Active Substance: LEVOTHYROXINE
  12. ATORVASTATIN [Concomitant]
     Active Substance: ATORVASTATIN
  13. GABAPENTIN. [Concomitant]
     Active Substance: GABAPENTIN
  14. PRAMIPEXOLE. [Concomitant]
     Active Substance: PRAMIPEXOLE
  15. AMOXCLAV [Concomitant]
     Active Substance: AMOXICILLIN\CLAVULANIC ACID
  16. CLONAZEPAM. [Concomitant]
     Active Substance: CLONAZEPAM
  17. DIAZEPAM. [Concomitant]
     Active Substance: DIAZEPAM
  18. ALBUTEROL. [Concomitant]
     Active Substance: ALBUTEROL
  19. POTASSIUM CHLORIDE. [Concomitant]
     Active Substance: POTASSIUM CHLORIDE
  20. OMEPRAZOLE. [Concomitant]
     Active Substance: OMEPRAZOLE
  21. PREDNISONE. [Concomitant]
     Active Substance: PREDNISONE
  22. METOLAZONE. [Concomitant]
     Active Substance: METOLAZONE
  23. TRANEX [Concomitant]
     Active Substance: TRANEXAMIC ACID
  24. PROMETH [Concomitant]
     Active Substance: PROMETHAZINE HYDROCHLORIDE
  25. PROMETHAZINE [Concomitant]
     Active Substance: PROMETHAZINE\PROMETHAZINE HYDROCHLORIDE
  26. DULERA [Concomitant]
     Active Substance: FORMOTEROL FUMARATE DIHYDRATE\MOMETASONE FUROATE
  27. FLUTICASONE. [Concomitant]
     Active Substance: FLUTICASONE
  28. OPSUMIT [Suspect]
     Active Substance: MACITENTAN
     Indication: PULMONARY ARTERIAL HYPERTENSION
     Dosage: 10 MG, QD
     Route: 048
     Dates: start: 201611
  29. TORSEMIDE. [Concomitant]
     Active Substance: TORSEMIDE
  30. SPIRONOLACTONE. [Concomitant]
     Active Substance: SPIRONOLACTONE
  31. VENTOLIN [Concomitant]
     Active Substance: ALBUTEROL SULFATE
  32. AZITHROMYCIN ANHYDROUS. [Concomitant]
     Active Substance: AZITHROMYCIN ANHYDROUS
  33. VERAMYST [Concomitant]
     Active Substance: FLUTICASONE FUROATE
  34. ZOLPIDEM [Concomitant]
     Active Substance: ZOLPIDEM\ZOLPIDEM TARTRATE
  35. ONDANSETRON [Concomitant]
     Active Substance: ONDANSETRON

REACTIONS (5)
  - Breast conserving surgery [Unknown]
  - Breast cancer [Unknown]
  - Pulmonary arterial hypertension [Unknown]
  - Blood iron decreased [Unknown]
  - Headache [Unknown]

NARRATIVE: CASE EVENT DATE: 201804
